FAERS Safety Report 23957052 (Version 2)
Quarter: 2024Q3

REPORT INFORMATION
  Report Type: Spontaneous
  Country: ES (occurrence: None)
  Receive Date: 20240610
  Receipt Date: 20240701
  Transmission Date: 20241017
  Serious: Yes (Life-Threatening, Hospitalization, Other)
  Sender: ASTRAZENECA
  Company Number: 2024A132501

PATIENT
  Sex: Female

DRUGS (13)
  1. FASENRA [Suspect]
     Active Substance: BENRALIZUMAB
     Indication: Asthma
     Route: 058
     Dates: start: 20240527, end: 20240528
  2. ESOMEPRAZOLE [Concomitant]
     Active Substance: ESOMEPRAZOLE
  3. HYDROCHLOROTHIAZIDE [Concomitant]
     Active Substance: HYDROCHLOROTHIAZIDE
  4. LOSARTAN [Concomitant]
     Active Substance: LOSARTAN
  5. LOSARTAN+HIDROCLOROTIAZIDA [Concomitant]
  6. METAMIZOL [Concomitant]
     Active Substance: METAMIZOLE SODIUM
  7. METAMIZOLE [Concomitant]
     Active Substance: METAMIZOLE
  8. NAPROXEN RATIOPHARM [Concomitant]
  9. NAPROXEN [Concomitant]
     Active Substance: NAPROXEN
  10. NAPROXENO RATIOPHARM [Concomitant]
  11. ROSUVASTATINA KERN [Concomitant]
  12. SIMVASTATIN [Concomitant]
     Active Substance: SIMVASTATIN
  13. SIMVASTATIN [Concomitant]
     Active Substance: SIMVASTATIN

REACTIONS (2)
  - Asthmatic crisis [Unknown]
  - Bronchospasm [Unknown]
